FAERS Safety Report 4844087-0 (Version None)
Quarter: 2005Q4

REPORT INFORMATION
  Report Type: 
  Country: None (occurrence: None)
  Receive Date: 20051202
  Receipt Date: 20051006
  Transmission Date: 20060501
  Serious: Yes (Hospitalization)
  Sender: FDA-Public Use
  Company Number: US-MERCK-0510USA05961

PATIENT
  Age: 51 Year
  Sex: Female
  Weight: 65 kg

DRUGS (8)
  1. VIOXX [Suspect]
     Indication: BACK PAIN
     Route: 048
     Dates: start: 19990101, end: 20041007
  2. VIOXX [Suspect]
     Route: 048
     Dates: start: 20040323
  3. VIOXX [Suspect]
     Route: 048
     Dates: start: 19991012, end: 20041007
  4. VIOXX [Suspect]
     Route: 048
  5. VIOXX [Suspect]
     Indication: SHOULDER PAIN
     Route: 048
     Dates: start: 19990101, end: 20041007
  6. VIOXX [Suspect]
     Route: 048
     Dates: start: 20040323
  7. VIOXX [Suspect]
     Route: 048
     Dates: start: 19991012, end: 20041007
  8. VIOXX [Suspect]
     Route: 048

REACTIONS (6)
  - CARDIAC DISORDER [None]
  - CHEST PAIN [None]
  - HYPERSENSITIVITY [None]
  - HYPERTENSION [None]
  - NASAL CONGESTION [None]
  - PRESCRIBED OVERDOSE [None]
